FAERS Safety Report 25827826 (Version 2)
Quarter: 2025Q4

REPORT INFORMATION
  Report Type: Other
  Country: US (occurrence: US)
  Receive Date: 20250921
  Receipt Date: 20251026
  Transmission Date: 20260119
  Serious: No
  Sender: TRAVERE THERAPEUTICS
  Company Number: US-TRAVERE-2025TVT01274

PATIENT
  Age: 36 Year
  Sex: Female

DRUGS (1)
  1. FILSPARI [Suspect]
     Active Substance: SPARSENTAN
     Indication: IgA nephropathy
     Route: 048
     Dates: start: 20250721

REACTIONS (3)
  - Muscle spasms [Unknown]
  - Fatigue [None]
  - Menstruation irregular [Unknown]

NARRATIVE: CASE EVENT DATE: 20250722
